FAERS Safety Report 13674361 (Version 1)
Quarter: 2017Q2

REPORT INFORMATION
  Report Type: Spontaneous
  Country: AU (occurrence: AU)
  Receive Date: 20170621
  Receipt Date: 20170621
  Transmission Date: 20170830
  Serious: Yes (Death)
  Sender: FDA-Public Use
  Company Number: AU-CONCORDIA PHARMACEUTICALS INC.-GSH201706-003525

PATIENT
  Age: 83 Year
  Sex: Male

DRUGS (4)
  1. VERAPAMIL [Concomitant]
     Active Substance: VERAPAMIL HYDROCHLORIDE
  2. WARFARIN [Concomitant]
     Active Substance: WARFARIN
  3. DIGOXIN. [Concomitant]
     Active Substance: DIGOXIN
  4. NILUTAMIDE. [Suspect]
     Active Substance: NILUTAMIDE
     Route: 048
     Dates: start: 20161027, end: 20170123

REACTIONS (4)
  - Dyspnoea [Fatal]
  - Respiratory failure [Fatal]
  - Malaise [Fatal]
  - Fatigue [Fatal]

NARRATIVE: CASE EVENT DATE: 20161201
